FAERS Safety Report 20737359 (Version 1)
Quarter: 2022Q2

REPORT INFORMATION
  Report Type: Report from Study
  Country: BR (occurrence: BR)
  Receive Date: 20220421
  Receipt Date: 20220421
  Transmission Date: 20220721
  Serious: Yes (Other)
  Sender: FDA-Public Use
  Company Number: BR-JNJFOC-20220429737

PATIENT
  Age: 51 Year
  Sex: Female

DRUGS (3)
  1. SIMPONI [Suspect]
     Active Substance: GOLIMUMAB
     Indication: Psoriatic arthropathy
     Route: 058
     Dates: start: 20201219
  2. SIMPONI [Suspect]
     Active Substance: GOLIMUMAB
  3. METHOTREXATE [Concomitant]
     Active Substance: METHOTREXATE
     Route: 065

REACTIONS (5)
  - Surgery [Unknown]
  - Intervertebral disc protrusion [Not Recovered/Not Resolved]
  - COVID-19 [Unknown]
  - Fibromyalgia [Not Recovered/Not Resolved]
  - Vertebral osteophyte [Not Recovered/Not Resolved]

NARRATIVE: CASE EVENT DATE: 20210101
